FAERS Safety Report 9540123 (Version 1)
Quarter: 2013Q2

REPORT INFORMATION
  Report Type: Spontaneous
  Country: US (occurrence: None)
  Receive Date: 20130521
  Receipt Date: 20130521
  Transmission Date: 20140414
  Serious: Yes (Other)
  Sender: FDA-Public Use
  Company Number: 1000044436

PATIENT
  Age: 82 Year
  Sex: Male

DRUGS (1)
  1. TUDORZA PRESSAIR [Suspect]
     Indication: CHRONIC OBSTRUCTIVE PULMONARY DISEASE
     Dosage: 800MCG (400 MCG,2 IN 1 D),RESPIRATORY (INHALATION)

REACTIONS (4)
  - Drug ineffective [None]
  - Joint swelling [None]
  - Nausea [None]
  - Asthenia [None]
